FAERS Safety Report 8796461 (Version 1)
Quarter: 2012Q4

REPORT INFORMATION
  Report Type: 
  Country: ID (occurrence: ID)
  Receive Date: 20120920
  Receipt Date: 20120920
  Transmission Date: 20130627
  Serious: Yes (Death, Hospitalization)
  Sender: FDA-Public Use
  Company Number: PHHY2012ID080472

PATIENT
  Age: 34 Year
  Sex: Male

DRUGS (1)
  1. GLIVEC [Suspect]
     Indication: CHRONIC MYELOID LEUKAEMIA
     Dosage: 400 mg, daily
     Route: 048

REACTIONS (5)
  - Death [Fatal]
  - Splenomegaly [Unknown]
  - General physical health deterioration [Unknown]
  - Epistaxis [Unknown]
  - Laboratory test abnormal [None]
